FAERS Safety Report 16115444 (Version 1)
Quarter: 2019Q1

REPORT INFORMATION
  Report Type: Spontaneous
  Country: FR (occurrence: FR)
  Receive Date: 20190325
  Receipt Date: 20190325
  Transmission Date: 20190418
  Serious: Yes (Hospitalization)
  Sender: FDA-Public Use
  Company Number: PHHY2019FR063573

PATIENT
  Age: 82 Year
  Sex: Male

DRUGS (2)
  1. CORTANCYL [Suspect]
     Active Substance: PREDNISONE
     Indication: RADIOTHERAPY
     Route: 048
  2. AFINITOR [Suspect]
     Active Substance: EVEROLIMUS
     Indication: LUNG CANCER METASTATIC
     Dosage: 10 MG, QD
     Route: 048
     Dates: start: 201401, end: 20160628

REACTIONS (3)
  - Renal failure [Recovering/Resolving]
  - Hyperglycaemia [Recovered/Resolved]
  - Steroid diabetes [Recovered/Resolved]

NARRATIVE: CASE EVENT DATE: 20151028
